FAERS Safety Report 6034998-5 (Version None)
Quarter: 2009Q1

REPORT INFORMATION
  Report Type: 
  Country: None (occurrence: None)
  Receive Date: 20090109
  Receipt Date: 20090109
  Transmission Date: 20090719
  Serious: Yes (Hospitalization)
  Sender: FDA-Public Use
  Company Number: None

PATIENT
  Age: 80 Year
  Sex: Male
  Weight: 97.0698 kg

DRUGS (1)
  1. ZOLEDRONIC ACID [Suspect]
     Indication: PROSTATE CANCER
     Dosage: 3.5 ONCE IV
     Route: 042
     Dates: start: 20071217, end: 20071217

REACTIONS (1)
  - LOBAR PNEUMONIA [None]
